FAERS Safety Report 21002571 (Version 1)
Quarter: 2022Q2

REPORT INFORMATION
  Report Type: Spontaneous
  Country: US (occurrence: US)
  Receive Date: 20220624
  Receipt Date: 20220624
  Transmission Date: 20220721
  Serious: No
  Sender: FDA-Public Use
  Company Number: US-BioHaven Pharmaceuticals-2022BHV001276

PATIENT
  Age: 38 Year
  Sex: Female

DRUGS (33)
  1. NURTEC ODT [Suspect]
     Active Substance: RIMEGEPANT SULFATE
     Indication: Product used for unknown indication
     Route: 065
  2. NOVOLOG [Concomitant]
     Active Substance: INSULIN ASPART
     Indication: Type 2 diabetes mellitus
     Route: 030
  3. LEVEMIR [Concomitant]
     Active Substance: INSULIN DETEMIR
     Indication: Type 2 diabetes mellitus
     Route: 030
  4. ALBUTEROL [Concomitant]
     Active Substance: ALBUTEROL
     Indication: Asthma
     Route: 048
  5. Symibcort [Concomitant]
     Indication: Asthma
     Route: 048
  6. LETROZOLE [Concomitant]
     Active Substance: LETROZOLE
     Indication: Prenatal care
     Route: 048
  7. LYRICA [Concomitant]
     Active Substance: PREGABALIN
     Indication: Product used for unknown indication
     Dosage: TAKE 1 CAPSULE TWICE A DAY?FROM MEDICATION LIST UPDATED AS OF 5-JAN-2022
     Route: 065
     Dates: end: 20211227
  8. LYRICA [Concomitant]
     Active Substance: PREGABALIN
     Dosage: TAKE 1 CAPSULE TWICE A DAY?FROM MEDICATION LIST UPDATED AS OF 5-JAN-2022
     Route: 065
  9. LYRICA [Concomitant]
     Active Substance: PREGABALIN
     Dosage: TAKE 1 CAPSULE TWICE A DAY?FROM MEDICATION LIST UPDATED AS OF 16-FEB-2022
     Route: 065
  10. Novolog QuikPen [Concomitant]
     Indication: Product used for unknown indication
     Dosage: CARB SCALE, USUALLY 31 UNITS 3-4 TIMES PER DAY
     Route: 065
  11. Levemir QuikPen [Concomitant]
     Indication: Product used for unknown indication
     Dosage: 31 UNITS IN THE EVENING
     Route: 065
  12. NASACORT [Concomitant]
     Active Substance: TRIAMCINOLONE ACETONIDE
     Indication: Product used for unknown indication
     Dosage: 2 SPRAYS ONCE A DAY AS NEEDED
     Route: 045
  13. SINGULAIR [Concomitant]
     Active Substance: MONTELUKAST SODIUM
     Indication: Product used for unknown indication
     Dosage: 1 PILL ONCE A DAY AS NEEDED
     Route: 065
  14. Albuterol Generic inhaler [Concomitant]
     Indication: Product used for unknown indication
     Dosage: 2 PUFFS EVERY 4 HOURS AS NEEDED
  15. TRELEGY ELLIPTA [Concomitant]
     Active Substance: FLUTICASONE FUROATE\UMECLIDINIUM BROMIDE\VILANTEROL TRIFENATATE
     Indication: Product used for unknown indication
     Dosage: 1 PUFF ONCE A DAY
     Route: 065
  16. IBUPROFEN [Concomitant]
     Active Substance: IBUPROFEN
     Indication: Product used for unknown indication
     Route: 065
  17. PEPCID [Concomitant]
     Active Substance: FAMOTIDINE
     Indication: Product used for unknown indication
     Dosage: 1 PILL TWICE A DAY
     Route: 065
  18. Xyzal OTC [Concomitant]
     Indication: Product used for unknown indication
     Dosage: 1 DAILY AS NEEDED
     Route: 065
  19. Albuterol nebules [Concomitant]
     Indication: Product used for unknown indication
     Route: 065
  20. Ibatropium nebules [Concomitant]
     Indication: Product used for unknown indication
     Route: 065
  21. ZOLOFT [Concomitant]
     Active Substance: SERTRALINE HYDROCHLORIDE
     Indication: Anxiety
     Route: 065
  22. ZOFRAN [Concomitant]
     Active Substance: ONDANSETRON HYDROCHLORIDE
     Indication: Product used for unknown indication
     Dosage: 1 TABLET EVERY 8 HOURS AS NEEDED
     Route: 065
  23. EPIPEN [Concomitant]
     Active Substance: EPINEPHRINE
     Indication: Product used for unknown indication
     Dosage: AUTO INJECT
  24. VERAPAMIL [Concomitant]
     Active Substance: VERAPAMIL HYDROCHLORIDE
     Indication: Product used for unknown indication
     Dosage: 1 PILL TWICE A DAY
     Route: 065
  25. ATIVAN [Concomitant]
     Active Substance: LORAZEPAM
     Indication: Product used for unknown indication
     Route: 065
  26. NORFLEX [Concomitant]
     Active Substance: ORPHENADRINE CITRATE
     Indication: Product used for unknown indication
     Route: 065
  27. BOTOX [Concomitant]
     Active Substance: ONABOTULINUMTOXINA
     Indication: Migraine
     Dosage: 1 ROUND OF 31 INJECTIONS OF BOTOX
     Dates: start: 202112
  28. VITAMINS [Concomitant]
     Active Substance: VITAMINS
     Indication: Product used for unknown indication
     Route: 065
  29. VITAMIN D3 [Concomitant]
     Active Substance: CHOLECALCIFEROL
     Indication: Product used for unknown indication
     Dosage: 2,000 UNITS DAILY
     Route: 065
  30. B12 Injections [Concomitant]
     Indication: Product used for unknown indication
  31. MECLIZINE [Concomitant]
     Active Substance: MECLIZINE HYDROCHLORIDE
     Indication: Dizziness
     Route: 065
  32. PROTONIX [Concomitant]
     Active Substance: PANTOPRAZOLE SODIUM
     Indication: Product used for unknown indication
     Route: 065
  33. MAGNESIUM [Concomitant]
     Active Substance: MAGNESIUM
     Indication: Product used for unknown indication
     Route: 065

REACTIONS (4)
  - Urticaria [Unknown]
  - Swollen tongue [Unknown]
  - Pharyngeal swelling [Unknown]
  - Pruritus [Unknown]
